FAERS Safety Report 16665955 (Version 1)
Quarter: 2019Q3

REPORT INFORMATION
  Report Type: Spontaneous
  Country: US (occurrence: US)
  Receive Date: 20190805
  Receipt Date: 20190805
  Transmission Date: 20191004
  Serious: Yes (Hospitalization, Other)
  Sender: FDA-Public Use
  Company Number: US-ABBVIE-19K-163-2869207-00

PATIENT
  Age: 54 Year
  Sex: Female
  Weight: 102.15 kg

DRUGS (1)
  1. HUMIRA [Suspect]
     Active Substance: ADALIMUMAB
     Indication: PSORIASIS
     Dosage: LOADING DOSE
     Route: 058
     Dates: start: 20190711, end: 20190711

REACTIONS (7)
  - Cellulitis [Recovering/Resolving]
  - Dizziness [Unknown]
  - Leukocytosis [Recovering/Resolving]
  - Vomiting [Unknown]
  - Nausea [Unknown]
  - Headache [Unknown]
  - Arthralgia [Unknown]

NARRATIVE: CASE EVENT DATE: 201907
